FAERS Safety Report 14357053 (Version 8)
Quarter: 2018Q2

REPORT INFORMATION
  Report Type: Report from Study
  Country: TR (occurrence: TR)
  Receive Date: 20180105
  Receipt Date: 20180402
  Transmission Date: 20180711
  Serious: Yes (Hospitalization)
  Sender: FDA-Public Use
  Company Number: TR-ALEXION PHARMACEUTICALS INC.-A201714705

PATIENT
  Age: 38 Year
  Sex: Female
  Weight: 91 kg

DRUGS (21)
  1. PAXERA [Concomitant]
     Active Substance: PAROXETINE HYDROCHLORIDE
     Indication: DEPRESSION
     Dosage: 10 MG, QD
     Route: 048
     Dates: start: 20141115, end: 20160630
  2. PAXERA [Concomitant]
     Active Substance: PAROXETINE HYDROCHLORIDE
     Dosage: 10 MG, QD
     Route: 048
     Dates: start: 20160709
  3. MEDROXYPROGESTERONE [Concomitant]
     Active Substance: MEDROXYPROGESTERONE
     Indication: UTERINE DISORDER
  4. FOLBIOL [Concomitant]
     Active Substance: FOLIC ACID
     Indication: FOLATE DEFICIENCY
     Dosage: 5 MG, QD
     Route: 048
     Dates: start: 20171221, end: 20180115
  5. AVIL                               /00085102/ [Concomitant]
     Indication: PROPHYLAXIS
     Dosage: 2 ML, QD
     Route: 042
     Dates: start: 20171226, end: 20180108
  6. GYNO-FERRO SANOL [Concomitant]
     Indication: ANAEMIA
     Dosage: 100 MG, BID
     Route: 048
     Dates: start: 20180109, end: 20180115
  7. MESTINON [Concomitant]
     Active Substance: PYRIDOSTIGMINE BROMIDE
     Indication: MYASTHENIA GRAVIS
     Dosage: 300 MG, FIVE TIMES DAILY
     Route: 048
     Dates: start: 20151031, end: 20160630
  8. MESTINON [Concomitant]
     Active Substance: PYRIDOSTIGMINE BROMIDE
     Dosage: 60 MG, FIVE TIMES DAILY
     Route: 048
     Dates: start: 20160709
  9. RANITAB                            /00550801/ [Concomitant]
     Indication: PROPHYLAXIS
     Dosage: 50 MG, QD
     Route: 042
     Dates: start: 20171226, end: 20180108
  10. AUGMENTIN [Concomitant]
     Active Substance: AMOXICILLIN\CLAVULANATE POTASSIUM
     Indication: ANTIBIOTIC PROPHYLAXIS
     Dosage: 2000 MG, BID
     Route: 048
     Dates: start: 20160307, end: 20160321
  11. ECULIZUMAB [Suspect]
     Active Substance: ECULIZUMAB
     Dosage: 240 MG, UNK
     Route: 042
     Dates: start: 20171212, end: 20171212
  12. CEFAKS                             /00454603/ [Concomitant]
     Indication: UPPER RESPIRATORY TRACT INFECTION
     Dosage: 500 MG, BID
     Route: 048
     Dates: start: 20170512, end: 20170518
  13. LANSOR [Concomitant]
     Active Substance: LANSOPRAZOLE
     Indication: PROPHYLAXIS
     Dosage: 30 MG, QD
     Route: 048
     Dates: start: 20160225
  14. NAC                                /00082801/ [Concomitant]
     Indication: UPPER RESPIRATORY TRACT INFECTION
     Dosage: 900 MG, QD
     Route: 048
     Dates: start: 20170512, end: 20170522
  15. ECULIZUMAB [Suspect]
     Active Substance: ECULIZUMAB
     Indication: MYASTHENIA GRAVIS
     Dosage: 240 ML, UNK
     Route: 042
     Dates: start: 20160224, end: 20160224
  16. YASMIN [Concomitant]
     Active Substance: DROSPIRENONE\ETHINYL ESTRADIOL
     Indication: CONTRACEPTION
     Dosage: 3 MG, QD
     Route: 048
     Dates: start: 20150717
  17. MEDROXYPROGESTERONE [Concomitant]
     Active Substance: MEDROXYPROGESTERONE
     Indication: MENSTRUATION IRREGULAR
     Dosage: 5 MG, QD
     Route: 048
     Dates: start: 20160815, end: 20160824
  18. IMURAN [Concomitant]
     Active Substance: AZATHIOPRINE
     Indication: MYASTHENIA GRAVIS
     Dosage: 100 MG, BID
     Route: 048
     Dates: start: 20160709, end: 20171225
  19. IRON SULFATE [Concomitant]
     Active Substance: FERROUS SULFATE ANHYDROUS
     Indication: ANAEMIA
     Dosage: 80 MG, BID
     Route: 048
     Dates: start: 20171227, end: 20180108
  20. TETRADOX                           /00055703/ [Concomitant]
     Indication: ANTIBIOTIC PROPHYLAXIS
     Dosage: 100 MG, BID
     Route: 048
     Dates: start: 20160630, end: 20160708
  21. GADOVIST [Concomitant]
     Active Substance: GADOBUTROL
     Indication: NUCLEAR MAGNETIC RESONANCE IMAGING
     Dosage: 1 MMOL/ML, SINGLE
     Route: 042
     Dates: start: 20180105, end: 20180105

REACTIONS (4)
  - Urinary tract infection [Recovered/Resolved]
  - Arthritis reactive [Recovered/Resolved]
  - Gastroenteritis [Recovered/Resolved]
  - Quadriparesis [Recovered/Resolved]

NARRATIVE: CASE EVENT DATE: 20171220
